FAERS Safety Report 4568100-3 (Version None)
Quarter: 2005Q1

REPORT INFORMATION
  Report Type: 
  Country: None (occurrence: None)
  Receive Date: 20050202
  Receipt Date: 20050107
  Transmission Date: 20050727
  Serious: Yes (Life-Threatening, Hospitalization, Other)
  Sender: FDA-Public Use
  Company Number: IE-NOVOPROD-241530

PATIENT
  Sex: Female
  Weight: 3 kg

DRUGS (9)
  1. NOVOLOG [Suspect]
     Indication: DIABETES MELLITUS INSULIN-DEPENDENT
     Dosage: 52 IU, QD
     Route: 015
     Dates: start: 20040529
  2. INSULATARD PENFILL [Concomitant]
     Indication: DIABETES MELLITUS INSULIN-DEPENDENT
     Dosage: 60 IU, QD
     Route: 015
     Dates: start: 20040528
  3. BUPIVACAINE [Concomitant]
     Dosage: 5 ML, 125%
     Route: 015
     Dates: start: 20041222, end: 20041223
  4. FENTANYL [Concomitant]
     Dosage: 100 UG, 2 UG/ML
     Route: 015
     Dates: start: 20041222, end: 20041223
  5. BENSYLPENICILLIN [Concomitant]
     Dosage: 3 G, QD
     Route: 015
     Dates: start: 20041222, end: 20041222
  6. BENSYLPENICILLIN [Concomitant]
     Dosage: 1.5 G, QD
     Route: 015
     Dates: start: 20041223, end: 20041223
  7. ENOXAPARIN SODIUM [Concomitant]
     Dosage: 40 MG, QD
     Route: 015
     Dates: start: 20041223, end: 20041223
  8. ENOXAPARIN SODIUM [Concomitant]
     Dosage: 40 MG, QD
     Dates: start: 20041224, end: 20041227
  9. ELTROXIN ^GLAXO^ [Concomitant]
     Dosage: 150 UG, QD
     Route: 015
     Dates: start: 19970701

REACTIONS (4)
  - CAESAREAN SECTION [None]
  - DRUG EXPOSURE DURING PREGNANCY [None]
  - FOETAL DISTRESS SYNDROME [None]
  - HYPOGLYCAEMIA NEONATAL [None]
